FAERS Safety Report 6766958-0 (Version None)
Quarter: 2010Q2

REPORT INFORMATION
  Report Type: 
  Country: None (occurrence: None)
  Receive Date: 20100611
  Receipt Date: 20100607
  Transmission Date: 20101027
  Serious: Yes (Hospitalization)
  Sender: FDA-Public Use
  Company Number: US-GILEAD-2010-0029674

PATIENT
  Sex: Male
  Weight: 68.1 kg

DRUGS (11)
  1. LETAIRIS [Suspect]
     Indication: PULMONARY ARTERIAL HYPERTENSION
     Route: 048
     Dates: start: 20090318
  2. REVATIO [Concomitant]
  3. COUMADIN [Concomitant]
  4. ALDACTONE [Concomitant]
  5. METOLAZONE [Concomitant]
  6. CARDIZEM LA [Concomitant]
  7. DILANTIN [Concomitant]
  8. ALLOPURINOL [Concomitant]
  9. LEVOXYL [Concomitant]
  10. TYLENOL [Concomitant]
  11. K-DUR [Concomitant]

REACTIONS (1)
  - LYMPHOEDEMA [None]
